FAERS Safety Report 6998015-2 (Version None)
Quarter: 2010Q3

REPORT INFORMATION
  Report Type: 
  Country: None (occurrence: None)
  Receive Date: 20100920
  Receipt Date: 20071016
  Transmission Date: 20110219
  Serious: Yes (Other)
  Sender: FDA-Public Use
  Company Number: US-ASTRAZENECA-2006UW23239

PATIENT
  Age: 479 Month
  Sex: Female
  Weight: 227.8 kg

DRUGS (12)
  1. SEROQUEL [Suspect]
     Indication: ANXIETY
     Dosage: 25 MG, ONE TO TWO AT NIGHT
     Route: 048
     Dates: start: 20030701
  2. SEROQUEL [Suspect]
     Indication: DEPRESSION
     Dosage: 25 MG, ONE TO TWO AT NIGHT
     Route: 048
     Dates: start: 20030701
  3. SEROQUEL [Suspect]
     Indication: INSOMNIA
     Dosage: 25 MG, ONE TO TWO AT NIGHT
     Route: 048
     Dates: start: 20030701
  4. SEROQUEL [Suspect]
     Route: 048
     Dates: start: 20050101, end: 20060101
  5. SEROQUEL [Suspect]
     Route: 048
     Dates: start: 20050101, end: 20060101
  6. SEROQUEL [Suspect]
     Route: 048
     Dates: start: 20050101, end: 20060101
  7. XANAX [Concomitant]
     Dosage: 0.5 MG DAILY AS REQUIRED
     Dates: start: 20030701
  8. ABILIFY [Concomitant]
     Dates: start: 20051101
  9. LIPITOR [Concomitant]
     Indication: HYPERLIPIDAEMIA
     Dates: start: 20030701
  10. TOPAMAX [Concomitant]
     Indication: MIGRAINE PROPHYLAXIS
     Dates: start: 20060601
  11. NEXIUM [Concomitant]
     Dates: start: 20030701
  12. LEXAPRO [Concomitant]
     Dates: start: 20030701

REACTIONS (5)
  - DIABETES MELLITUS [None]
  - HYPERGLYCAEMIA [None]
  - OBESITY [None]
  - TYPE 2 DIABETES MELLITUS [None]
  - VISION BLURRED [None]
